FAERS Safety Report 5581593-8 (Version None)
Quarter: 2008Q1

REPORT INFORMATION
  Report Type: 
  Country: None (occurrence: None)
  Receive Date: 20080104
  Receipt Date: 20071228
  Transmission Date: 20080703
  Serious: Yes (Hospitalization)
  Sender: FDA-Public Use
  Company Number: ES-PURDUE-GBR_2007_0003576

PATIENT
  Age: 76 Year
  Sex: Male

DRUGS (5)
  1. SEVREDOL TABLETS 10 MG [Suspect]
     Indication: POST HERPETIC NEURALGIA
     Dosage: 10 MG, 12 TABLETS
     Route: 048
     Dates: start: 20070101, end: 20070622
  2. SPIRIVA [Concomitant]
     Indication: DRUG USE FOR UNKNOWN INDICATION
     Dosage: 18 MCG, UNK
     Route: 065
     Dates: start: 20070523, end: 20070622
  3. SERETIDE [Concomitant]
     Indication: DRUG USE FOR UNKNOWN INDICATION
     Dosage: 50/500 MCG POWDER 1X28 ALVEOLES
     Route: 055
     Dates: start: 20070523, end: 20070622
  4. ACETYLCYSTEINE [Concomitant]
     Indication: DRUG USE FOR UNKNOWN INDICATION
     Dosage: 600 MG, UNK
     Route: 065
     Dates: start: 20070523, end: 20070630
  5. CIPROFLOXACIN [Concomitant]
     Indication: DRUG USE FOR UNKNOWN INDICATION
     Dosage: UNK, UNK
     Route: 065
     Dates: start: 20070622, end: 20070627

REACTIONS (3)
  - DECREASED ACTIVITY [None]
  - DYSPNOEA [None]
  - SOMNOLENCE [None]
